FAERS Safety Report 8281340-5 (Version None)
Quarter: 2012Q2

REPORT INFORMATION
  Report Type: 
  Country: None (occurrence: None)
  Receive Date: 20120413
  Receipt Date: 20120409
  Transmission Date: 20120825
  Serious: No
  Sender: FDA-Public Use
  Company Number: US-PFIZER INC-2012063181

PATIENT
  Sex: Female

DRUGS (1)
  1. REVATIO [Suspect]
     Indication: PULMONARY HYPERTENSION
     Dosage: 20 MG, 3X/DAY
     Dates: start: 20100323

REACTIONS (1)
  - HERPES ZOSTER [None]
